FAERS Safety Report 6275286-1 (Version None)
Quarter: 2009Q3

REPORT INFORMATION
  Report Type: 
  Country: None (occurrence: None)
  Receive Date: 20090721
  Receipt Date: 20090713
  Transmission Date: 20100115
  Serious: Yes (Hospitalization)
  Sender: FDA-Public Use
  Company Number: A0796664A

PATIENT
  Age: 72 Year
  Sex: Male

DRUGS (10)
  1. AVANDIA [Suspect]
     Dosage: 8MG PER DAY
     Route: 048
     Dates: start: 20080101
  2. METFORMIN HCL [Concomitant]
  3. TRICOR [Concomitant]
  4. DIOVAN [Concomitant]
  5. ISORDIL [Concomitant]
  6. SIMVASTATIN [Concomitant]
  7. CARVEDILOL [Concomitant]
  8. ASPIRIN [Concomitant]
  9. PNEUMONIA VACCINE [Concomitant]
  10. PLAVIX [Concomitant]

REACTIONS (9)
  - BLOOD GLUCOSE INCREASED [None]
  - BLOOD TRIGLYCERIDES INCREASED [None]
  - CHEST PAIN [None]
  - DYSPNOEA [None]
  - MUSCLE DISORDER [None]
  - MUSCLE TIGHTNESS [None]
  - MYOCARDIAL INFARCTION [None]
  - PAIN IN JAW [None]
  - WEIGHT DECREASED [None]
